FAERS Safety Report 7388323-8 (Version None)
Quarter: 2011Q2

REPORT INFORMATION
  Report Type: 
  Country: None (occurrence: None)
  Receive Date: 20110401
  Receipt Date: 20110323
  Transmission Date: 20111010
  Serious: Yes (Hospitalization)
  Sender: FDA-Public Use
  Company Number: US-TEVA-268728USA

PATIENT
  Sex: Male
  Weight: 70.37 kg

DRUGS (2)
  1. CLARAVIS [Suspect]
     Indication: ACNE
     Route: 048
     Dates: start: 20101203, end: 20110127
  2. CLARAVIS [Suspect]
     Route: 048
     Dates: start: 20101203, end: 20110127

REACTIONS (16)
  - INTERVERTEBRAL DISC PROTRUSION [None]
  - OEDEMA PERIPHERAL [None]
  - ARTHRALGIA [None]
  - SYNCOPE [None]
  - GAIT DISTURBANCE [None]
  - BACK PAIN [None]
  - ACNE [None]
  - HEADACHE [None]
  - WEIGHT DECREASED [None]
  - MUSCULAR WEAKNESS [None]
  - MYALGIA [None]
  - CHEST PAIN [None]
  - FATIGUE [None]
  - DECREASED APPETITE [None]
  - DRY SKIN [None]
  - PAIN [None]
